FAERS Safety Report 19507368 (Version 2)
Quarter: 2021Q3

REPORT INFORMATION
  Report Type: Spontaneous
  Country: US (occurrence: US)
  Receive Date: 20210708
  Receipt Date: 20210726
  Transmission Date: 20211014
  Serious: Yes (Other)
  Sender: FDA-Public Use
  Company Number: US-PFIZER INC-2019535682

PATIENT
  Age: 74 Year
  Sex: Female
  Weight: 95.25 kg

DRUGS (2)
  1. PREMARIN [Suspect]
     Active Substance: ESTROGENS, CONJUGATED
     Dosage: 2X/WEEK (10CC TWICE A WEEK)
     Route: 067
  2. PREMARIN [Suspect]
     Active Substance: ESTROGENS, CONJUGATED
     Indication: UTERINE PROLAPSE
     Dosage: 0.625 MG

REACTIONS (4)
  - Intentional product use issue [Unknown]
  - Off label use [Unknown]
  - Haemorrhage [Unknown]
  - Body height decreased [Unknown]
